FAERS Safety Report 19528996 (Version 1)
Quarter: 2021Q3

REPORT INFORMATION
  Report Type: Spontaneous
  Country: US (occurrence: US)
  Receive Date: 20210713
  Receipt Date: 20210713
  Transmission Date: 20211014
  Serious: No
  Sender: FDA-Public Use
  Company Number: US-MYOVANT SCIENCES GMBH-2021MYSCI0600020

PATIENT
  Sex: Male

DRUGS (2)
  1. ORGOVYX [Suspect]
     Active Substance: RELUGOLIX
     Indication: PROSTATE CANCER
     Dosage: 120 MILLIGRAM, ONE TIME DOSE
     Route: 048
     Dates: start: 20210526, end: 20210526
  2. ORGOVYX [Suspect]
     Active Substance: RELUGOLIX
     Dosage: 120 MILLIGRAM, QD
     Route: 048
     Dates: start: 20210527

REACTIONS (5)
  - Bone pain [Unknown]
  - Incorrect dose administered [Unknown]
  - Thirst [Unknown]
  - Hot flush [Unknown]
  - Pain in extremity [Unknown]
